FAERS Safety Report 5809744-8 (Version None)
Quarter: 2008Q3

REPORT INFORMATION
  Report Type: 
  Country: None (occurrence: None)
  Receive Date: 20080709
  Receipt Date: 20080627
  Transmission Date: 20090109
  Serious: Yes (Other)
  Sender: FDA-Public Use
  Company Number: 2008-01430

PATIENT
  Age: 76 Year
  Sex: Male
  Weight: 48 kg

DRUGS (7)
  1. VELCADE [Suspect]
     Indication: MULTIPLE MYELOMA
     Dosage: 2 MG, INTRAVENOUS
     Route: 042
     Dates: start: 20080324, end: 20080421
  2. NORVASC [Concomitant]
  3. MICARDIS [Concomitant]
  4. GLUFAST (ZINC OXIDE, COD-LIVER OIL) [Concomitant]
  5. FAMOTIDINE [Concomitant]
  6. SEIBULE [Concomitant]
  7. MAGNESIUM OXIDE (MAGNESIUM OXIDE) [Concomitant]

REACTIONS (3)
  - ATRIAL FIBRILLATION [None]
  - PALPITATIONS [None]
  - URTICARIA [None]
